FAERS Safety Report 5451957-1 (Version None)
Quarter: 2007Q3

REPORT INFORMATION
  Report Type: 
  Country: None (occurrence: None)
  Receive Date: 20070912
  Receipt Date: 20070829
  Transmission Date: 20080115
  Serious: Yes (Death, Hospitalization)
  Sender: FDA-Public Use
  Company Number: CERZ-10570

PATIENT
  Age: 1 Year
  Sex: Male
  Weight: 6 kg

DRUGS (12)
  1. CEREZYME [Suspect]
     Indication: GAUCHER'S DISEASE
     Dosage: 800 UNITS Q2WKS IV
     Route: 042
     Dates: start: 20031127, end: 20040401
  2. CEREZYME [Suspect]
  3. CEREZYME [Suspect]
     Indication: GAUCHER'S DISEASE
     Dosage: 1200 UNITS Q2WKS IV
     Route: 042
     Dates: start: 20030716, end: 20031127
  4. CEREZYME [Suspect]
  5. ZONISAMIDE [Concomitant]
  6. PHENOBARBITAL TAB [Concomitant]
  7. ERYTHROMYCIN [Concomitant]
  8. DANTROLENE SODIUM [Concomitant]
  9. CLONAZEPAM [Concomitant]
  10. BROMHEXINE HYDROCHLORIDE [Concomitant]
  11. SODIUM CHLORIDE [Concomitant]
  12. DIAZEPAM [Concomitant]

REACTIONS (5)
  - CONVULSION [None]
  - DISEASE RECURRENCE [None]
  - PNEUMONIA [None]
  - RESPIRATORY FAILURE [None]
  - STATUS EPILEPTICUS [None]
